FAERS Safety Report 7255186-0 (Version None)
Quarter: 2011Q1

REPORT INFORMATION
  Report Type: 
  Country: None (occurrence: None)
  Receive Date: 20110129
  Receipt Date: 20100318
  Transmission Date: 20110831
  Serious: No
  Sender: FDA-Public Use
  Company Number: US-ABBOTT-10P-163-0627872-00

PATIENT
  Sex: Male
  Weight: 204.75 kg

DRUGS (13)
  1. SEROQUEL [Concomitant]
  2. OXISTAT [Concomitant]
  3. TRAMADOL HCL [Concomitant]
  4. HUMIRA [Suspect]
     Indication: PSORIASIS
     Dates: start: 20100203
  5. HYDROCHLOROTHIAZIDE [Concomitant]
  6. CLOBETASOL [Concomitant]
  7. TACIONEX [Concomitant]
  8. SALVEX [Concomitant]
  9. CELEXA [Concomitant]
  10. RISPERDAL [Concomitant]
  11. MELOXICAM [Concomitant]
  12. PRILOSEC [Concomitant]
  13. KUROL [Concomitant]

REACTIONS (4)
  - DYSPHONIA [None]
  - COUGH [None]
  - EAR PRURITUS [None]
  - EAR PAIN [None]
